FAERS Safety Report 7113234-2 (Version None)
Quarter: 2010Q4

REPORT INFORMATION
  Report Type: 
  Country: None (occurrence: None)
  Receive Date: 20101119
  Receipt Date: 20100218
  Transmission Date: 20110411
  Serious: No
  Sender: FDA-Public Use
  Company Number: A0842124A

PATIENT
  Age: 27 Year
  Sex: Female
  Weight: 50.9 kg

DRUGS (2)
  1. WELLBUTRIN SR [Suspect]
     Indication: DEPRESSION
     Dosage: 150MG TWICE PER DAY
     Route: 048
     Dates: start: 20100118, end: 20100129
  2. BIRTH CONTROL [Concomitant]
     Route: 048

REACTIONS (7)
  - ANXIETY [None]
  - DRY MOUTH [None]
  - HYPERHIDROSIS [None]
  - INSOMNIA [None]
  - OROPHARYNGEAL PAIN [None]
  - PAIN [None]
  - PALPITATIONS [None]
